FAERS Safety Report 5332532-6 (Version None)
Quarter: 2007Q2

REPORT INFORMATION
  Report Type: 
  Country: None (occurrence: None)
  Receive Date: 20070521
  Receipt Date: 20070507
  Transmission Date: 20071010
  Serious: Yes (Death)
  Sender: FDA-Public Use
  Company Number: 2007P1000228

PATIENT
  Age: 39 Year
  Sex: Female

DRUGS (7)
  1. BUSULFAN (BUSULFAN) [Suspect]
     Indication: STEM CELL TRANSPLANT
     Dosage: 9.5 ML; QID; IV
     Route: 042
     Dates: start: 20070115, end: 20070118
  2. VALPROATE SODIUM [Concomitant]
  3. CYCLOPHOSPHAMIDE [Concomitant]
  4. LENOGRASTIM [Concomitant]
  5. METHOTREXATE SODIUM [Concomitant]
  6. TACROLIMUS [Suspect]
  7. PREDNISOLONE [Suspect]

REACTIONS (15)
  - ASCITES [None]
  - BLOOD PRESSURE DECREASED [None]
  - CARDIAC FAILURE [None]
  - COAGULOPATHY [None]
  - FLUID RETENTION [None]
  - HYPOVOLAEMIA [None]
  - PATHOGEN RESISTANCE [None]
  - PLEURAL EFFUSION [None]
  - PSEUDOMONAS INFECTION [None]
  - RENAL CYST [None]
  - STAPHYLOCOCCAL SEPSIS [None]
  - THERAPEUTIC RESPONSE DECREASED [None]
  - URINE OUTPUT DECREASED [None]
  - VENOOCCLUSIVE LIVER DISEASE [None]
  - WEIGHT INCREASED [None]
